FAERS Safety Report 8816582 (Version 1)
Quarter: 2012Q4

REPORT INFORMATION
  Report Type: Spontaneous
  Country: US (occurrence: None)
  Receive Date: 20121001
  Receipt Date: 20121001
  Transmission Date: 20130627
  Serious: Yes (Hospitalization)
  Sender: FDA-Public Use
  Company Number: None

PATIENT
  Sex: Female
  Weight: 57 kg

DRUGS (3)
  1. CARBOPLATIN [Suspect]
  2. DIGOXIN [Concomitant]
  3. LASIX [Concomitant]

REACTIONS (4)
  - Asthenia [None]
  - Dehydration [None]
  - Fatigue [None]
  - Toxicity to various agents [None]
